FAERS Safety Report 10369201 (Version 1)
Quarter: 2014Q3

REPORT INFORMATION
  Report Type: Spontaneous
  Country: US (occurrence: US)
  Receive Date: 20140807
  Receipt Date: 20140807
  Transmission Date: 20150326
  Serious: No
  Sender: FDA-Public Use
  Company Number: US-PFIZER INC-2014216090

PATIENT
  Age: 75 Year
  Sex: Female

DRUGS (1)
  1. TEMSIROLIMUS [Suspect]
     Active Substance: TEMSIROLIMUS
     Indication: METASTATIC RENAL CELL CARCINOMA
     Dosage: UNK, WEEKLY

REACTIONS (2)
  - Disease progression [Unknown]
  - Metastatic renal cell carcinoma [Unknown]
